FAERS Safety Report 8563207-8 (Version None)
Quarter: 2012Q3

REPORT INFORMATION
  Report Type: 
  Country: None (occurrence: None)
  Receive Date: 20120802
  Receipt Date: 20120725
  Transmission Date: 20120928
  Serious: No
  Sender: FDA-Public Use
  Company Number: US-AMGEN-USASP2012024559

PATIENT
  Age: 38 Year
  Sex: Male
  Weight: 112.93 kg

DRUGS (1)
  1. ENBREL [Suspect]
     Indication: ANKYLOSING SPONDYLITIS
     Dosage: 50 MG, QWK
     Route: 058
     Dates: start: 20120302

REACTIONS (2)
  - INJECTION SITE WARMTH [None]
  - INJECTION SITE HAEMATOMA [None]
